FAERS Safety Report 9320097 (Version 1)
Quarter: 2013Q2

REPORT INFORMATION
  Report Type: Report from Study
  Country: DE (occurrence: DE)
  Receive Date: 20130530
  Receipt Date: 20130530
  Transmission Date: 20140414
  Serious: Yes (Hospitalization)
  Sender: FDA-Public Use
  Company Number: DE-TEVA-407775ISR

PATIENT
  Age: 62 Year
  Sex: Female
  Weight: 54 kg

DRUGS (6)
  1. PACLITAXEL [Suspect]
     Indication: OVARIAN CANCER
     Dosage: 175 MG/M2 DAILY; LAST DOSE PRIOR TO SAE: 13-FEB-2013 (175 MG/M2)
     Route: 042
     Dates: start: 20121029
  2. CARBOPLATIN [Suspect]
     Indication: OVARIAN CANCER
     Dosage: LAST DOSE AUC 5 PRIOR TO SAE: 13-FEB-2013
     Route: 042
     Dates: start: 20121029
  3. BEVACIZUMAB [Suspect]
     Indication: OVARIAN CANCER
     Dosage: 15 MG/KG DAILY; LAST DOSE PRIOR TO SAE: 6-MAR-2013 (15 MG/KG)
     Route: 042
     Dates: start: 20121119
  4. METOHEXAL [Concomitant]
     Indication: HYPERTENSION
     Dosage: 95  DAILY; GERMANY, LAST DOSE PRIOR TO SAE ON 02-APR-2012  (95 UNIT NOT REPORTED, 2X1/2)
     Route: 048
     Dates: start: 1998
  5. COAPROVEL [Concomitant]
     Indication: HYPERTENSION
     Dosage: 300/12.5
     Route: 048
     Dates: start: 1998
  6. COAPROVEL [Concomitant]
     Dosage: 150/12.5, LAST DOSE PRIOR TO SAE ON 02-APR-2012 (1 IN 1 D)
     Route: 048

REACTIONS (2)
  - Dyspnoea [Recovering/Resolving]
  - Cardiac disorder [Unknown]
